FAERS Safety Report 9399017 (Version 4)
Quarter: 2013Q4

REPORT INFORMATION
  Report Type: Report from Study
  Country: GB (occurrence: GB)
  Receive Date: 20130714
  Receipt Date: 20131224
  Transmission Date: 20140711
  Serious: Yes (Hospitalization)
  Sender: FDA-Public Use
  Company Number: GB-ROCHE-1247310

PATIENT
  Age: 74 Year
  Sex: Female
  Weight: 61.7 kg

DRUGS (8)
  1. BEVACIZUMAB [Suspect]
     Indication: COLORECTAL CANCER METASTATIC
     Route: 042
     Dates: start: 20130320
  2. CLOPIDOGREL [Concomitant]
     Route: 048
  3. LOPERAMIDE [Concomitant]
     Indication: DIARRHOEA
     Route: 048
  4. OMEPRAZOLE [Concomitant]
     Indication: DYSPEPSIA
     Route: 048
  5. METOCLOPRAMIDE [Concomitant]
     Indication: NAUSEA
     Route: 048
  6. CALCIUM CARBONATE/CHOLECALCIFEROL [Concomitant]
     Dosage: 2 TABLET DAILY
     Route: 048
  7. ALENDRONIC ACID [Concomitant]
     Route: 048
  8. SIMVASTATIN [Concomitant]
     Indication: BLOOD CHOLESTEROL ABNORMAL
     Route: 048

REACTIONS (1)
  - Convulsion [Recovered/Resolved]
